FAERS Safety Report 16783519 (Version 1)
Quarter: 2019Q3

REPORT INFORMATION
  Report Type: Spontaneous
  Country: SI (occurrence: SI)
  Receive Date: 20190907
  Receipt Date: 20190907
  Transmission Date: 20191005
  Serious: Yes (Death, Hospitalization)
  Sender: FDA-Public Use
  Company Number: SI-TEVA-2019-SI-1103035

PATIENT
  Age: 72 Year
  Sex: Male

DRUGS (5)
  1. DEXAMETHASONE. [Concomitant]
     Active Substance: DEXAMETHASONE
     Dosage: 4 MILLIGRAM
     Dates: start: 201907
  2. EPOSIN [Suspect]
     Active Substance: ETOPOSIDE
     Indication: SMALL CELL LUNG CANCER
     Dosage: EPOSIN 50MG/50ML, 200 MILLIGRAM
     Route: 042
     Dates: start: 20190702, end: 20190725
  3. CISPLATIN. [Suspect]
     Active Substance: CISPLATIN
     Indication: SMALL CELL LUNG CANCER
     Dosage: CISPLATIN ACCORD 50MG/50 ML VIAL, 150 MILLIGRAM
     Route: 042
     Dates: start: 20190702, end: 20190725
  4. LEKADOL 500 MG [Concomitant]
     Dosage: 500 MILLIGRAM
     Dates: start: 201907
  5. HELEX 0,5 MG [Concomitant]
     Dosage: 5 MILLIGRAM
     Dates: start: 201907

REACTIONS (3)
  - Full blood count [Fatal]
  - Febrile neutropenia [Fatal]
  - Pneumonia [Fatal]

NARRATIVE: CASE EVENT DATE: 20190805
